FAERS Safety Report 12819728 (Version 1)
Quarter: 2016Q4

REPORT INFORMATION
  Report Type: Spontaneous
  Country: US (occurrence: US)
  Receive Date: 20161006
  Receipt Date: 20161006
  Transmission Date: 20170207
  Serious: Yes (Hospitalization, Other)
  Sender: FDA-Public Use
  Company Number: None

PATIENT
  Sex: Male
  Weight: 16.2 kg

DRUGS (1)
  1. BABY TEETHING (HYLAND HOMEOPATHIC) [Suspect]
     Active Substance: HOMEOPATHICS
     Indication: TEETHING
     Dosage: ?          QUANTITY:100 TABLET(S);OTHER FREQUENCY:WHEN NEEDED FOR TE;?
     Route: 048
     Dates: start: 20150228, end: 20150830

REACTIONS (2)
  - Dyspnoea [None]
  - Oxygen saturation decreased [None]
